FAERS Safety Report 5365765-3 (Version None)
Quarter: 2007Q2

REPORT INFORMATION
  Report Type: 
  Country: None (occurrence: None)
  Receive Date: 20070621
  Receipt Date: 20070611
  Transmission Date: 20071010
  Serious: Yes (Other)
  Sender: FDA-Public Use
  Company Number: US-SANOFI-SYNTHELABO-A03200607389

PATIENT
  Sex: Female
  Weight: 78.5 kg

DRUGS (34)
  1. AMBIEN [Suspect]
     Indication: INSOMNIA
     Route: 048
     Dates: start: 20010901
  2. AMBIEN [Suspect]
     Route: 048
     Dates: start: 20040101, end: 20040101
  3. MIRAPEX [Concomitant]
     Route: 065
  4. AMITRIPTYLINE HCL [Concomitant]
     Route: 065
  5. EFFEXOR [Concomitant]
     Route: 065
  6. TEMAZEPAM [Concomitant]
     Route: 065
  7. VIOXX [Concomitant]
     Route: 065
  8. NYSTAT/TRIAM [Concomitant]
     Dosage: UNK
     Route: 065
  9. DIFLUCAN [Concomitant]
     Route: 065
  10. PREMARIN [Concomitant]
     Route: 065
  11. DIAZEPAM [Concomitant]
     Route: 065
  12. SONATA [Concomitant]
     Route: 065
  13. PAXIL [Concomitant]
     Route: 065
  14. EFFEXOR XR [Concomitant]
     Route: 065
  15. TRAZODONE HCL [Concomitant]
     Route: 065
  16. GENTAMICIN [Concomitant]
     Route: 065
  17. HYDROCO/APAP [Concomitant]
     Route: 065
  18. CARISOPRODOL [Concomitant]
     Route: 065
  19. ZOLOFT [Concomitant]
     Route: 065
  20. SINGULAIR [Concomitant]
     Dosage: UNK
     Route: 048
  21. ADVAIR DISKUS 100/50 [Concomitant]
     Dosage: UNK
     Route: 055
  22. ALBUTEROL [Concomitant]
     Route: 065
  23. ESTRADIOL [Concomitant]
     Route: 065
  24. BENICAR [Concomitant]
     Route: 048
  25. NEXIUM [Concomitant]
     Route: 048
  26. SEROQUEL [Concomitant]
     Dosage: UNK
     Route: 048
  27. SEROQUEL [Concomitant]
     Dosage: UNK
     Route: 048
  28. WELLBUTRIN [Suspect]
     Indication: DRUG USE FOR UNKNOWN INDICATION
     Dosage: UNK
     Route: 048
  29. PREDNISONE TAB [Concomitant]
     Route: 065
  30. AMOXI/CLAV [Concomitant]
     Dosage: 875-125
     Route: 065
  31. ZITHROMAX [Concomitant]
     Dosage: UNK
     Route: 065
  32. COMBIVENT [Concomitant]
     Dosage: UNK
     Route: 065
  33. ZYPREXA [Concomitant]
     Route: 065
  34. CELEXA [Concomitant]
     Route: 065

REACTIONS (16)
  - ABNORMAL BEHAVIOUR [None]
  - AGGRESSION [None]
  - AMNESIA [None]
  - BACK PAIN [None]
  - CONFUSIONAL STATE [None]
  - DRUG DEPENDENCE [None]
  - HOMICIDAL IDEATION [None]
  - INCONTINENCE [None]
  - INTENTIONAL OVERDOSE [None]
  - LACRIMATION INCREASED [None]
  - MAJOR DEPRESSION [None]
  - PANIC ATTACK [None]
  - SUICIDAL IDEATION [None]
  - TINNITUS [None]
  - VISION BLURRED [None]
  - VISUAL ACUITY REDUCED [None]
